FAERS Safety Report 8777596 (Version 4)
Quarter: 2012Q4

REPORT INFORMATION
  Report Type: 
  Country: FI (occurrence: FI)
  Receive Date: 20120910
  Receipt Date: 20121018
  Transmission Date: 20130627
  Serious: Yes (Hospitalization, Other)
  Sender: FDA-Public Use
  Company Number: FI-ELI_LILLY_AND_COMPANY-FI201209000855

PATIENT
  Sex: Male

DRUGS (6)
  1. FORSTEO [Suspect]
     Indication: OSTEOPOROSIS
     Dosage: 20 ug, qd
     Route: 058
     Dates: start: 20120528
  2. PENTASA [Concomitant]
     Indication: COLITIS ULCERATIVE
     Dosage: UNK
  3. PREDNISOL [Concomitant]
     Indication: PROPHYLAXIS
     Dosage: UNK
  4. THYROXIN [Concomitant]
     Indication: PROPHYLAXIS
     Dosage: UNK
  5. SOMAC [Concomitant]
     Indication: HYPERCHLORHYDRIA
     Dosage: UNK
  6. MICARDIS [Concomitant]
     Indication: HYPERTENSION
     Dosage: UNK

REACTIONS (3)
  - Bacterial infection [Recovered/Resolved]
  - Pyelonephritis [Recovered/Resolved]
  - Adrenal gland cancer [Unknown]
